FAERS Safety Report 10156487 (Version 2)
Quarter: 2014Q2

REPORT INFORMATION
  Report Type: Spontaneous
  Country: US (occurrence: None)
  Receive Date: 20140505
  Receipt Date: 20140513
  Transmission Date: 20141212
  Serious: Yes (Hospitalization, Other)
  Sender: FDA-Public Use
  Company Number: 2014-US-004869

PATIENT
  Age: 37 Year
  Sex: Female

DRUGS (2)
  1. XYREM [Suspect]
     Indication: CATAPLEXY
     Route: 048
     Dates: start: 201012
  2. XYREM [Suspect]
     Route: 048
     Dates: start: 201012

REACTIONS (6)
  - Adjustment disorder [None]
  - Foot fracture [None]
  - Intestinal obstruction [None]
  - Ear infection [None]
  - Bipolar disorder [None]
  - Anxiety [None]
